FAERS Safety Report 5272819-9 (Version None)
Quarter: 2007Q1

REPORT INFORMATION
  Report Type: 
  Country: None (occurrence: None)
  Receive Date: 20070316
  Receipt Date: 20070309
  Transmission Date: 20070707
  Serious: Yes (Hospitalization)
  Sender: FDA-Public Use
  Company Number: 2007BL000765

PATIENT
  Age: 16 Month
  Sex: Male
  Weight: 7.65 kg

DRUGS (1)
  1. ATROPINE SULFATE [Suspect]
     Indication: STRABISMUS
     Dosage: TOPICAL
     Route: 061
     Dates: start: 20070110, end: 20070221

REACTIONS (1)
  - URINARY RETENTION [None]
